FAERS Safety Report 10889646 (Version 2)
Quarter: 2015Q3

REPORT INFORMATION
  Report Type: Spontaneous
  Country: US (occurrence: US)
  Receive Date: 20150305
  Receipt Date: 20150911
  Transmission Date: 20151125
  Serious: Yes (Hospitalization, Other)
  Sender: FDA-Public Use
  Company Number: US-GLAXOSMITHKLINE-US2015GSK028067

PATIENT
  Age: 52 Year
  Sex: Male

DRUGS (7)
  1. LOSARTAN. [Concomitant]
     Active Substance: LOSARTAN
  2. HYDROXYCHLOROQUINE [Concomitant]
     Active Substance: HYDROXYCHLOROQUINE
  3. LEFLUNOMIDE. [Concomitant]
     Active Substance: LEFLUNOMIDE
  4. ADVAIR DISKUS [Suspect]
     Active Substance: FLUTICASONE PROPIONATE\SALMETEROL XINAFOATE
     Indication: CHRONIC OBSTRUCTIVE PULMONARY DISEASE
     Dosage: 1 PUFF(S), BID
     Route: 048
  5. ENBREL [Concomitant]
     Active Substance: ETANERCEPT
  6. KLOR-CON [Concomitant]
     Active Substance: POTASSIUM CHLORIDE
  7. CLINDAMYCIN [Concomitant]
     Active Substance: CLINDAMYCIN\CLINDAMYCIN PHOSPHATE

REACTIONS (11)
  - Pyrexia [Recovered/Resolved]
  - Emergency care examination [Recovered/Resolved]
  - Streptococcal infection [Recovering/Resolving]
  - Central venous catheterisation [Recovered/Resolved]
  - Swelling face [Recovering/Resolving]
  - Staphylococcal infection [Recovering/Resolving]
  - Cough [Recovered/Resolved]
  - Swelling [Recovering/Resolving]
  - Neck mass [Recovering/Resolving]
  - Bacterial infection [Recovering/Resolving]
  - Neck surgery [Recovering/Resolving]

NARRATIVE: CASE EVENT DATE: 20141220
